FAERS Safety Report 7497497-X (Version None)
Quarter: 2011Q2

REPORT INFORMATION
  Report Type: 
  Country: None (occurrence: None)
  Receive Date: 20110523
  Receipt Date: 20090923
  Transmission Date: 20111010
  Serious: Yes (Other)
  Sender: FDA-Public Use
  Company Number: DE-UCBSA-8052144

PATIENT
  Sex: Male
  Weight: 95 kg

DRUGS (12)
  1. KEPPRA [Suspect]
     Indication: EPILEPSY
     Route: 048
     Dates: start: 20080101
  2. OXCARBAZEPINE [Interacting]
     Route: 048
     Dates: start: 20071001
  3. LOCOL RETARD [Concomitant]
  4. TORSEMIDE [Concomitant]
  5. PENTAERYTHRITOL TETRANITRATE [Concomitant]
  6. DIGITOXIN 0.7 [Concomitant]
     Indication: CARDIAC FAILURE
     Route: 048
  7. DIOVAN HCT [Concomitant]
  8. INSULIN [Concomitant]
  9. PLAVIX [Interacting]
     Indication: CORONARY ARTERY DISEASE
     Dosage: 1 DOSAGE FORM ONCE DAILY
     Route: 048
     Dates: end: 20090801
  10. VIMPAT [Interacting]
     Indication: EPILEPSY
     Route: 048
     Dates: start: 20090301
  11. METOPROLOL RETARD [Concomitant]
     Indication: HYPERTENSION
  12. FALITTHRON [Concomitant]

REACTIONS (2)
  - CONVULSION [None]
  - DRUG INTERACTION [None]
